FAERS Safety Report 24362599 (Version 2)
Quarter: 2025Q1

REPORT INFORMATION
  Report Type: Report from Study
  Country: US (occurrence: US)
  Receive Date: 20240925
  Receipt Date: 20250118
  Transmission Date: 20250409
  Serious: Yes (Other)
  Sender: ABBVIE
  Company Number: US-ABBVIE-5933755

PATIENT
  Age: 65 Year
  Sex: Female

DRUGS (31)
  1. RINVOQ [Suspect]
     Active Substance: UPADACITINIB
     Indication: Rheumatoid arthritis
     Route: 048
  2. RINVOQ [Suspect]
     Active Substance: UPADACITINIB
     Indication: Rheumatoid arthritis
     Route: 048
     Dates: start: 20210901, end: 20240831
  3. TYLENOL [Concomitant]
     Active Substance: ACETAMINOPHEN
     Indication: Product used for unknown indication
  4. EPIPEN [Concomitant]
     Active Substance: EPINEPHRINE
     Indication: Anaphylactic reaction
     Route: 030
  5. ERYTHROMYCIN [Concomitant]
     Active Substance: ERYTHROMYCIN
     Indication: Impaired gastric emptying
  6. ATROVENT [Concomitant]
     Active Substance: IPRATROPIUM BROMIDE
     Indication: Hypersensitivity
  7. LAMICTAL [Concomitant]
     Active Substance: LAMOTRIGINE
     Indication: Product used for unknown indication
     Dosage: 25 MG
     Route: 048
  8. MELATONIN [Concomitant]
     Active Substance: MELATONIN
     Indication: Product used for unknown indication
     Route: 048
  9. METAXALL [Concomitant]
     Active Substance: METAXALONE
     Indication: Product used for unknown indication
     Route: 048
  10. PLAQUENIL [Concomitant]
     Active Substance: HYDROXYCHLOROQUINE SULFATE
     Indication: Product used for unknown indication
     Dosage: EVERY MONDAY THROUGH FRIDAY
     Route: 048
  11. REFRESH DIGITAL PF [Concomitant]
     Active Substance: CARBOXYMETHYLCELLULOSE SODIUM\GLYCERIN\POLYSORBATE 80
     Indication: Product used for unknown indication
  12. ONDANSETRON [Concomitant]
     Active Substance: ONDANSETRON
     Indication: Nausea
     Route: 048
  13. ZENPEP [Concomitant]
     Active Substance: PANCRELIPASE AMYLASE\PANCRELIPASE LIPASE\PANCRELIPASE PROTEASE
     Indication: Product used for unknown indication
     Route: 048
  14. AZELASTINE [Concomitant]
     Active Substance: AZELASTINE
     Indication: Product used for unknown indication
  15. CICLOPIROX [Concomitant]
     Active Substance: CICLOPIROX
     Indication: Product used for unknown indication
     Dosage: APPIED DAILY TO AFFECTED NAILS , REMOVE ONCE A WEEK WITH NAIL POLISH REMOVER
  16. PROLIA [Concomitant]
     Active Substance: DENOSUMAB
     Indication: Product used for unknown indication
     Dosage: DOSAGE: 60 MG/ML
     Route: 058
  17. BENADRYL [Concomitant]
     Active Substance: DIPHENHYDRAMINE HYDROCHLORIDE
     Indication: Pruritus
     Dosage: 25 MG?THRICE A DAY
     Route: 048
  18. CYMBALTA [Concomitant]
     Active Substance: DULOXETINE HYDROCHLORIDE
     Indication: Product used for unknown indication
     Dosage: 60 MG?TWO CAPSULE BY MOUTH
     Route: 048
  19. ASPIRIN [Concomitant]
     Active Substance: ASPIRIN
     Indication: Transient ischaemic attack
  20. GABAPENTIN [Concomitant]
     Active Substance: GABAPENTIN
     Indication: Product used for unknown indication
     Route: 048
  21. ACETAMINOPHEN\HYDROCODONE [Concomitant]
     Active Substance: ACETAMINOPHEN\HYDROCODONE
     Indication: Pain
     Route: 048
  22. HIZENTRA [Concomitant]
     Active Substance: HUMAN IMMUNOGLOBULIN G
     Indication: Product used for unknown indication
     Route: 058
  23. HIZENTRA [Concomitant]
     Active Substance: HUMAN IMMUNOGLOBULIN G
     Indication: Product used for unknown indication
     Route: 058
  24. METOPROLOL [Concomitant]
     Active Substance: METOPROLOL
     Indication: Product used for unknown indication
     Dosage: 25 MG TWO TIMES DAILY
     Route: 048
  25. MICONAZOLE [Concomitant]
     Active Substance: MICONAZOLE
     Indication: Product used for unknown indication
  26. Klorcon M20 [Concomitant]
     Indication: Product used for unknown indication
     Route: 048
  27. ROSUVASTATIN [Concomitant]
     Active Substance: ROSUVASTATIN
     Indication: Product used for unknown indication
     Route: 048
  28. BIOTENE NOS [Concomitant]
     Active Substance: UNSPECIFIED INGREDIENT
     Indication: Product used for unknown indication
  29. BELSOMRA [Concomitant]
     Active Substance: SUVOREXANT
     Indication: Product used for unknown indication
     Route: 048
  30. PHAZYME [Concomitant]
     Active Substance: DIMETHICONE 410
     Indication: Product used for unknown indication
     Route: 048
  31. TRIAMCINOLONE [Concomitant]
     Active Substance: TRIAMCINOLONE
     Indication: Product used for unknown indication

REACTIONS (30)
  - Transient ischaemic attack [Recovering/Resolving]
  - Haemorrhoids [Unknown]
  - Large intestine polyp [Unknown]
  - Hypercholesterolaemia [Unknown]
  - Hypertension [Unknown]
  - Hypogammaglobulinaemia [Unknown]
  - Leukopenia [Unknown]
  - Bone density decreased [Unknown]
  - Osteopenia [Unknown]
  - Rectal haemorrhage [Unknown]
  - Restless legs syndrome [Unknown]
  - Sjogren^s syndrome [Unknown]
  - Pharyngo-oesophageal diverticulum [Unknown]
  - Fall [Unknown]
  - Face injury [Unknown]
  - Abdominal pain upper [Recovering/Resolving]
  - Pancreatitis acute [Unknown]
  - Annular pancreas [Unknown]
  - Essential hypertension [Unknown]
  - Cataract [Unknown]
  - Osteoarthritis [Unknown]
  - Impaired gastric emptying [Unknown]
  - Depression [Unknown]
  - Dysphagia [Unknown]
  - Wound [Unknown]
  - Diverticulum intestinal [Unknown]
  - Dysphagia [Unknown]
  - Pancreatic failure [Unknown]
  - Impaired gastric emptying [Unknown]
  - Syncope [Unknown]

NARRATIVE: CASE EVENT DATE: 20230910
